FAERS Safety Report 25312390 (Version 1)
Quarter: 2025Q2

REPORT INFORMATION
  Report Type: Report from Study
  Country: US (occurrence: US)
  Receive Date: 20250514
  Receipt Date: 20250514
  Transmission Date: 20250716
  Serious: Yes (Other)
  Sender: BAYER HEALTHCARE PHARMACEUTICALS INC.
  Company Number: US-BAYER-2025A049822

PATIENT
  Age: 41 Year
  Sex: Female

DRUGS (1)
  1. STIVARGA [Suspect]
     Active Substance: REGORAFENIB MONOHYDRATE
     Dosage: 120 MG, QD
     Route: 048
     Dates: start: 202504

REACTIONS (11)
  - Neuropathy peripheral [Unknown]
  - Gait inability [Recovering/Resolving]
  - Neuralgia [Not Recovered/Not Resolved]
  - Paraesthesia [None]
  - Decreased activity [Not Recovered/Not Resolved]
  - Decreased appetite [Not Recovered/Not Resolved]
  - Palmar-plantar erythrodysaesthesia syndrome [None]
  - Blister [Recovering/Resolving]
  - Flatulence [Recovering/Resolving]
  - Adverse drug reaction [None]
  - Product use issue [None]

NARRATIVE: CASE EVENT DATE: 20250101
